FAERS Safety Report 14243300 (Version 1)
Quarter: 2017Q4

REPORT INFORMATION
  Report Type: Spontaneous
  Country: DE (occurrence: DE)
  Receive Date: 20171201
  Receipt Date: 20171201
  Transmission Date: 20180321
  Serious: Yes (Other)
  Sender: FDA-Public Use
  Company Number: DE-TEVA-2017-DE-826400

PATIENT
  Age: 85 Year
  Sex: Female

DRUGS (1)
  1. LISINOPRIL ABZ 10 MG TABLETTEN [Suspect]
     Active Substance: LISINOPRIL
     Route: 048
     Dates: start: 201605, end: 20171113

REACTIONS (17)
  - Arrhythmia [Not Recovered/Not Resolved]
  - Weight increased [Not Recovered/Not Resolved]
  - Urinary incontinence [Not Recovered/Not Resolved]
  - Head discomfort [Not Recovered/Not Resolved]
  - Sleep apnoea syndrome [Unknown]
  - Haematemesis [Unknown]
  - Body temperature increased [Recovering/Resolving]
  - Throat irritation [Not Recovered/Not Resolved]
  - Liver function test abnormal [Not Recovered/Not Resolved]
  - Cough [Not Recovered/Not Resolved]
  - Oropharyngeal pain [Not Recovered/Not Resolved]
  - Ear pain [Not Recovered/Not Resolved]
  - Back pain [Not Recovered/Not Resolved]
  - Fluid retention [Unknown]
  - Abdominal distension [Not Recovered/Not Resolved]
  - Cystitis noninfective [Not Recovered/Not Resolved]
  - Abdominal pain [Not Recovered/Not Resolved]

NARRATIVE: CASE EVENT DATE: 20171027
